FAERS Safety Report 17347521 (Version 3)
Quarter: 2020Q1

REPORT INFORMATION
  Report Type: Spontaneous
  Country: US (occurrence: US)
  Receive Date: 20200129
  Receipt Date: 20200214
  Transmission Date: 20200409
  Serious: Yes (Other)
  Sender: FDA-Public Use
  Company Number: US-AMGEN-USASP2020013323

PATIENT
  Age: 65 Year
  Sex: Female
  Weight: 76.64 kg

DRUGS (6)
  1. REPATHA [Suspect]
     Active Substance: EVOLOCUMAB
     Indication: TYPE IIA HYPERLIPIDAEMIA
     Dosage: 140 MILLIGRAM PER MILLILITRE, Q2WK
     Route: 058
     Dates: start: 20151123
  2. ALBUTEROL HFA [Concomitant]
     Active Substance: ALBUTEROL SULFATE
     Indication: BRONCHOSPASM
     Dosage: 90 MICROGRAM, Q4H, INHALE 1-2 PUFFS INTO THE LUNGS EVERY 4 HOURS AS NEEDED
     Dates: start: 20190911
  3. ASPIRIN 81 [Concomitant]
     Active Substance: ASPIRIN
     Indication: CEREBROVASCULAR ACCIDENT
     Dosage: 81 MILLIGRAM, QD
     Route: 048
     Dates: start: 20181115
  4. REPATHA [Suspect]
     Active Substance: EVOLOCUMAB
     Indication: HYPERLIPIDAEMIA
  5. COZAAR [Concomitant]
     Active Substance: LOSARTAN POTASSIUM
     Dosage: 25 MILLIGRAM, QD
     Route: 048
     Dates: start: 20200130
  6. RETIN-A [Concomitant]
     Active Substance: TRETINOIN
     Dosage: 45 GRAM,APPLY TOPICALLY NIGHTLY AT BEDTIME. USES FOR 2WEEKS AND OFF FOR 2 WEEKS
     Route: 061

REACTIONS (8)
  - Arthropathy [Recovering/Resolving]
  - Dementia [Unknown]
  - Carotid artery stenosis [Unknown]
  - Rheumatoid lung [Recovered/Resolved]
  - Hypertension [Unknown]
  - Muscle disorder [Recovering/Resolving]
  - Arteriosclerosis coronary artery [Unknown]
  - Sinusitis [Unknown]

NARRATIVE: CASE EVENT DATE: 201811
